FAERS Safety Report 6232755-8 (Version None)
Quarter: 2009Q2

REPORT INFORMATION
  Report Type: 
  Country: None (occurrence: None)
  Receive Date: 20090617
  Receipt Date: 20090609
  Transmission Date: 20091009
  Serious: Yes (Hospitalization)
  Sender: FDA-Public Use
  Company Number: US-B.I. PHARMACEUTICALS,INC./RIDGEFIELD-2009-BP-07011BP

PATIENT
  Sex: Female

DRUGS (14)
  1. MIRAPEX [Suspect]
     Indication: MUSCLE SPASMS
     Dosage: .5MG
     Route: 048
     Dates: start: 20090301
  2. NORVASC [Suspect]
     Indication: HYPERTENSION
     Dates: start: 20090301
  3. DIOVAN HCT [Suspect]
     Indication: HYPERTENSION
     Dates: start: 20090301
  4. COUMADIN [Concomitant]
     Indication: DEEP VEIN THROMBOSIS
  5. THYROID TAB [Concomitant]
     Indication: HYPOTHYROIDISM
  6. MS CONTIN [Concomitant]
     Indication: PAIN MANAGEMENT
  7. HYDROCODONE BITARTRATE [Concomitant]
     Indication: PAIN MANAGEMENT
  8. SOMA [Concomitant]
     Indication: PAIN MANAGEMENT
  9. AMBIEN [Concomitant]
     Indication: PAIN MANAGEMENT
  10. VALIUM [Concomitant]
     Indication: PAIN MANAGEMENT
  11. CARAFATE [Concomitant]
     Indication: GASTROOESOPHAGEAL REFLUX DISEASE
  12. NEXIUM [Concomitant]
     Indication: GASTROOESOPHAGEAL REFLUX DISEASE
  13. NEXIUM [Concomitant]
     Indication: HIATUS HERNIA
  14. MAGNESIUM SULFATE [Concomitant]
     Indication: MUSCLE SPASMS
     Dosage: 2000MG

REACTIONS (8)
  - BLISTER [None]
  - BLOOD SODIUM [None]
  - CELLULITIS [None]
  - DIARRHOEA [None]
  - ERYTHEMA [None]
  - LOSS OF CONSCIOUSNESS [None]
  - OEDEMA PERIPHERAL [None]
  - WEIGHT DECREASED [None]
